FAERS Safety Report 14441490 (Version 2)
Quarter: 2018Q1

REPORT INFORMATION
  Report Type: Spontaneous
  Country: JP (occurrence: JP)
  Receive Date: 20180125
  Receipt Date: 20180307
  Transmission Date: 20180509
  Serious: Yes (Hospitalization, Other)
  Sender: FDA-Public Use
  Company Number: JP-JNJFOC-20170420975

PATIENT
  Age: 33 Year
  Sex: Female

DRUGS (3)
  1. INVEGA [Suspect]
     Active Substance: PALIPERIDONE
     Indication: SCHIZOPHRENIA
     Route: 048
     Dates: start: 20170912, end: 20180118
  2. INVEGA [Suspect]
     Active Substance: PALIPERIDONE
     Indication: SCHIZOPHRENIA
     Route: 048
     Dates: start: 20170411, end: 20170911
  3. TASMOLIN [Concomitant]
     Active Substance: BIPERIDEN
     Indication: PRODUCT USED FOR UNKNOWN INDICATION
     Route: 048
     Dates: start: 20170912

REACTIONS (17)
  - Malaise [Not Recovered/Not Resolved]
  - Extrapyramidal disorder [Unknown]
  - Aggression [Not Recovered/Not Resolved]
  - Irritability [Recovering/Resolving]
  - Anger [Not Recovered/Not Resolved]
  - Decreased appetite [Not Recovered/Not Resolved]
  - Hospitalisation [Unknown]
  - Withdrawal syndrome [Not Recovered/Not Resolved]
  - Oculogyric crisis [Recovered/Resolved]
  - Eye pain [Unknown]
  - Pyrexia [Recovered/Resolved]
  - Amenorrhoea [Not Recovered/Not Resolved]
  - Blepharospasm [Not Recovered/Not Resolved]
  - Muscle rigidity [Unknown]
  - Nausea [Not Recovered/Not Resolved]
  - Akathisia [Unknown]
  - Somnolence [Unknown]

NARRATIVE: CASE EVENT DATE: 2017
